FAERS Safety Report 8426657-6 (Version None)
Quarter: 2012Q2

REPORT INFORMATION
  Report Type: 
  Country: None (occurrence: None)
  Receive Date: 20120611
  Receipt Date: 20120605
  Transmission Date: 20120825
  Serious: Yes (Hospitalization)
  Sender: FDA-Public Use
  Company Number: US-B.I. PHARMACEUTICALS,INC./RIDGEFIELD-2012-BP-13173BP

PATIENT
  Sex: Female
  Weight: 52 kg

DRUGS (7)
  1. SIMVASTATIN [Concomitant]
     Indication: BLOOD CHOLESTEROL ABNORMAL
     Route: 048
  2. SPIRIVA [Suspect]
     Indication: CHRONIC OBSTRUCTIVE PULMONARY DISEASE
     Dosage: 18 MCG
     Route: 055
     Dates: start: 20080101
  3. ADVAIR DISKUS 100/50 [Concomitant]
     Indication: CHRONIC OBSTRUCTIVE PULMONARY DISEASE
     Route: 055
  4. ASPIRIN [Concomitant]
     Indication: CARDIAC DISORDER
     Dosage: 325 MG
     Route: 048
  5. PLAVIX [Concomitant]
     Indication: CORONARY ARTERY DISEASE
     Route: 048
     Dates: start: 20080101
  6. SYNTHROID [Concomitant]
     Indication: THYROID DISORDER
     Dosage: 88 MCG
     Route: 048
  7. METOPROLOL TARTRATE [Concomitant]
     Dosage: 25 MG

REACTIONS (3)
  - INCORRECT ROUTE OF DRUG ADMINISTRATION [None]
  - BIOPSY LUNG ABNORMAL [None]
  - PNEUMONIA [None]
